FAERS Safety Report 7023011-9 (Version None)
Quarter: 2010Q3

REPORT INFORMATION
  Report Type: 
  Country: None (occurrence: None)
  Receive Date: 20100930
  Receipt Date: 20100923
  Transmission Date: 20110219
  Serious: Yes (Death)
  Sender: FDA-Public Use
  Company Number: BR-BAYER-201019303LA

PATIENT

DRUGS (1)
  1. YASMIN [Suspect]
     Indication: CONTRACEPTION
     Route: 064
     Dates: start: 20091201, end: 20100722

REACTIONS (2)
  - FOETAL CARDIAC DISORDER [None]
  - FOETAL MALFORMATION [None]
